FAERS Safety Report 6372343-6 (Version None)
Quarter: 2009Q3

REPORT INFORMATION
  Report Type: 
  Country: None (occurrence: None)
  Receive Date: 20090924
  Receipt Date: 20081007
  Transmission Date: 20100115
  Serious: No
  Sender: FDA-Public Use
  Company Number: US-ASTRAZENECA-2008UW21833

PATIENT
  Age: 50 Year
  Sex: Female
  Weight: 90.7 kg

DRUGS (3)
  1. SEROQUEL [Suspect]
     Indication: BIPOLAR DISORDER
     Dosage: 100MG
     Route: 048
  2. LITHIUM [Concomitant]
     Dosage: 900MG
  3. PROZAC [Concomitant]
     Dosage: 20MG

REACTIONS (4)
  - INSOMNIA [None]
  - MOOD ALTERED [None]
  - NIGHTMARE [None]
  - WEIGHT INCREASED [None]
